FAERS Safety Report 9329302 (Version 1)
Quarter: 2013Q2

REPORT INFORMATION
  Report Type: Spontaneous
  Country: US (occurrence: US)
  Receive Date: 20130604
  Receipt Date: 20130604
  Transmission Date: 20140414
  Serious: No
  Sender: FDA-Public Use
  Company Number: US-SANOFI-AVENTIS-2012SA076355

PATIENT
  Age: 57 Year
  Sex: Female

DRUGS (3)
  1. LANTUS SOLOSTAR [Suspect]
     Indication: TYPE 2 DIABETES MELLITUS
     Dosage: 80 UNITS IN MORNING AND 80 UNITS IN EVENING DOSE:80 UNIT(S)
     Route: 058
     Dates: start: 2011
  2. SOLOSTAR [Suspect]
     Indication: TYPE 2 DIABETES MELLITUS
     Dates: start: 2011
  3. HUMALOG [Suspect]
     Indication: TYPE 2 DIABETES MELLITUS
     Route: 065

REACTIONS (2)
  - Hepatic steatosis [Not Recovered/Not Resolved]
  - Condition aggravated [Unknown]
